FAERS Safety Report 7776797-X (Version None)
Quarter: 2011Q3

REPORT INFORMATION
  Report Type: 
  Country: None (occurrence: None)
  Receive Date: 20110926
  Receipt Date: 20110607
  Transmission Date: 20111222
  Serious: Yes (Other)
  Sender: FDA-Public Use
  Company Number: US-BAYER-2011-049195

PATIENT
  Age: 38 Year
  Sex: Female

DRUGS (1)
  1. MIRENA [Suspect]
     Indication: PRODUCT USED FOR UNKNOWN INDICATION
     Dosage: 20 MCG/24HR, CONT
     Route: 015

REACTIONS (16)
  - PROCEDURAL PAIN [None]
  - BREAST TENDERNESS [None]
  - ABDOMINAL PAIN [None]
  - HAIR GROWTH ABNORMAL [None]
  - MENTAL IMPAIRMENT [None]
  - WEIGHT LOSS POOR [None]
  - FATIGUE [None]
  - IRRITABILITY [None]
  - ADVERSE DRUG REACTION [None]
  - ACNE [None]
  - ABDOMINAL DISTENSION [None]
  - MENSTRUATION IRREGULAR [None]
  - COGNITIVE DISORDER [None]
  - MENORRHAGIA [None]
  - WEIGHT INCREASED [None]
  - HEADACHE [None]
